FAERS Safety Report 7765617-5 (Version None)
Quarter: 2011Q3

REPORT INFORMATION
  Report Type: 
  Country: None (occurrence: None)
  Receive Date: 20110921
  Receipt Date: 20110915
  Transmission Date: 20111222
  Serious: Yes (Other)
  Sender: FDA-Public Use
  Company Number: PHHY2011NL79921

PATIENT
  Age: 89 Year
  Sex: Female

DRUGS (1)
  1. DICLOFENAC SODIUM [Suspect]
     Dosage: UNK UKN, UNK

REACTIONS (7)
  - PHOTOPSIA [None]
  - DELIRIUM [None]
  - VITAMIN B12 DECREASED [None]
  - SOMNOLENCE [None]
  - MEMORY IMPAIRMENT [None]
  - ANAEMIA MACROCYTIC [None]
  - FALL [None]
